FAERS Safety Report 14552006 (Version 1)
Quarter: 2018Q1

REPORT INFORMATION
  Report Type: Spontaneous
  Country: US (occurrence: US)
  Receive Date: 20180220
  Receipt Date: 20180220
  Transmission Date: 20180509
  Serious: No
  Sender: FDA-Public Use
  Company Number: US-PFIZER INC-2018072717

PATIENT
  Age: 62 Year
  Sex: Male
  Weight: 106.59 kg

DRUGS (1)
  1. SILDENAFIL CITRATE. [Suspect]
     Active Substance: SILDENAFIL CITRATE
     Dosage: 100 MG TABLET, (HE BROKE IT IN HALF AND TOOK APPROXIMATELY 55MG ONCE BY MOUTH)
     Route: 048
     Dates: start: 20180214

REACTIONS (2)
  - Drug ineffective [Unknown]
  - Nasal congestion [Recovered/Resolved]

NARRATIVE: CASE EVENT DATE: 20180214
